FAERS Safety Report 14803796 (Version 1)
Quarter: 2018Q2

REPORT INFORMATION
  Report Type: Spontaneous
  Country: JP (occurrence: JP)
  Receive Date: 20180425
  Receipt Date: 20180425
  Transmission Date: 20180711
  Serious: Yes (Disabling, Other)
  Sender: FDA-Public Use
  Company Number: JP-REGENERON PHARMACEUTICALS, INC.-2018-21623

PATIENT

DRUGS (1)
  1. EYLEA [Suspect]
     Active Substance: AFLIBERCEPT
     Indication: PRODUCT USED FOR UNKNOWN INDICATION
     Dosage: UNK, ONCE
     Route: 031
     Dates: start: 20180115, end: 20180115

REACTIONS (4)
  - Contraindicated product administered [Unknown]
  - Labelled drug-disease interaction medication error [Unknown]
  - Wrong technique in product usage process [Unknown]
  - Blindness [Unknown]

NARRATIVE: CASE EVENT DATE: 2018
